FAERS Safety Report 21806936 (Version 1)
Quarter: 2023Q1

REPORT INFORMATION
  Report Type: Spontaneous
  Country: US (occurrence: US)
  Receive Date: 20230102
  Receipt Date: 20230102
  Transmission Date: 20230417
  Serious: No
  Sender: FDA-Public Use
  Company Number: US-SA-SAC20221230000170

PATIENT
  Age: 68 Year
  Sex: Male

DRUGS (4)
  1. PLAVIX [Suspect]
     Active Substance: CLOPIDOGREL BISULFATE
     Dosage: UNK
     Route: 065
  2. BOSULIF [Suspect]
     Active Substance: BOSUTINIB MONOHYDRATE
     Dosage: 100 MG, BID
  3. PANTOPRAZOLE SODIUM [Suspect]
     Active Substance: PANTOPRAZOLE SODIUM
     Indication: Dyspepsia
     Dosage: UNK
  4. SPRYCEL [Concomitant]
     Active Substance: DASATINIB
     Dosage: UNK

REACTIONS (7)
  - Flatulence [Unknown]
  - Nausea [Unknown]
  - Muscle spasms [Unknown]
  - Abdominal distension [Unknown]
  - Pleural effusion [Unknown]
  - Stent placement [Unknown]
  - Arthropathy [Unknown]
